FAERS Safety Report 5296343-2 (Version None)
Quarter: 2007Q2

REPORT INFORMATION
  Report Type: 
  Country: None (occurrence: None)
  Receive Date: 20070413
  Receipt Date: 20070330
  Transmission Date: 20071010
  Serious: Yes (Other)
  Sender: FDA-Public Use
  Company Number: JP-MERCK-0704USA00677

PATIENT

DRUGS (4)
  1. COZAAR [Suspect]
     Indication: HYPERTENSION
     Route: 048
     Dates: start: 20060508, end: 20070316
  2. RENIVACE [Concomitant]
     Indication: HYPERTENSION
     Route: 048
     Dates: start: 20050101
  3. ADALAT [Concomitant]
     Indication: HYPERTENSION
     Route: 065
     Dates: start: 20050101
  4. DETANTOL R [Concomitant]
     Route: 048
     Dates: start: 20050101

REACTIONS (1)
  - MYOGLOBIN BLOOD INCREASED [None]
